FAERS Safety Report 23396749 (Version 2)
Quarter: 2024Q1

REPORT INFORMATION
  Report Type: Report from Study
  Country: US (occurrence: US)
  Receive Date: 20240112
  Receipt Date: 20240116
  Transmission Date: 20240410
  Serious: Yes (Death)
  Sender: FDA-Public Use
  Company Number: US-HBP-2024US030280

PATIENT
  Sex: Female

DRUGS (6)
  1. VALCHLOR [Suspect]
     Active Substance: MECHLORETHAMINE
     Indication: Cutaneous T-cell lymphoma
     Dosage: UNK, QD
     Route: 061
     Dates: start: 20140613
  2. THERA-M [Concomitant]
     Dosage: UNK, UNKNOWN
  3. FISH OIL [Concomitant]
     Active Substance: FISH OIL
     Dosage: UNK, UNKNOWN
  4. LISINOPRIL [Concomitant]
     Active Substance: LISINOPRIL
     Dosage: UNK, UNKNOWN
  5. ATENOLOL [Concomitant]
     Active Substance: ATENOLOL
     Dosage: UNK, UNKNOWN
  6. DONEPEZIL HYDROCHLORIDE [Concomitant]
     Active Substance: DONEPEZIL HYDROCHLORIDE
     Dosage: UNK, UNKNOWN

REACTIONS (1)
  - Death [Fatal]
